FAERS Safety Report 8505022-7 (Version None)
Quarter: 2012Q3

REPORT INFORMATION
  Report Type: 
  Country: None (occurrence: None)
  Receive Date: 20120712
  Receipt Date: 20120709
  Transmission Date: 20120928
  Serious: Yes (Other)
  Sender: FDA-Public Use
  Company Number: US-AMGEN-USASP2012042347

PATIENT
  Sex: Female

DRUGS (5)
  1. HUMIRA [Concomitant]
     Dosage: UNK
  2. ORENCIA [Concomitant]
     Dosage: UNK
  3. RITUXAN [Concomitant]
     Dosage: UNK
  4. REMICADE [Concomitant]
     Dosage: UNK
  5. ENBREL [Suspect]
     Indication: PRODUCT USED FOR UNKNOWN INDICATION
     Dosage: 100 MG, QWK
     Dates: start: 20040501, end: 20120101

REACTIONS (10)
  - INJECTION SITE PAIN [None]
  - SKIN DISCOLOURATION [None]
  - ARTHRALGIA [None]
  - INJECTION SITE ERYTHEMA [None]
  - PAIN [None]
  - RASH [None]
  - URTICARIA [None]
  - THROAT TIGHTNESS [None]
  - JOINT SWELLING [None]
  - PRURITUS [None]
